FAERS Safety Report 4379958-5 (Version None)
Quarter: 2004Q2

REPORT INFORMATION
  Report Type: 
  Country: None (occurrence: None)
  Receive Date: 20040614
  Receipt Date: 20040602
  Transmission Date: 20050107
  Serious: Yes (Life-Threatening)
  Sender: FDA-Public Use
  Company Number: 04P-143-0262783-00

PATIENT
  Sex: Male

DRUGS (1)
  1. EPILIM TABLETS (SODIUM VALPROATE) (SODIUM VALPROATE) (SODIUM VALPROATE [Suspect]
     Indication: EPILEPSY
     Dosage: 1500 MG, 1 IN 1 D. PER ORAL
     Route: 048
     Dates: start: 20030301

REACTIONS (1)
  - BENIGN INTRACRANIAL HYPERTENSION [None]
